FAERS Safety Report 5466292-5 (Version None)
Quarter: 2007Q3

REPORT INFORMATION
  Report Type: 
  Country: None (occurrence: None)
  Receive Date: 20070919
  Receipt Date: 20070904
  Transmission Date: 20080115
  Serious: Yes (Hospitalization)
  Sender: FDA-Public Use
  Company Number: GXKR2007JP07352

PATIENT
  Age: 51 Year
  Sex: Female
  Weight: 49 kg

DRUGS (4)
  1. THEOPHYLLINE [Suspect]
     Indication: ASTHMA
     Dosage: 200 MG, QD
     Dates: start: 19980101, end: 20030804
  2. CALCIUM LACTATE (CALCIUM LACTATE) [Concomitant]
  3. ALFACALCIDOL (ALFACALCIDOL) [Concomitant]
  4. PREDNISONE [Concomitant]

REACTIONS (6)
  - BLOOD CREATININE INCREASED [None]
  - HEADACHE [None]
  - HYPERCALCAEMIA [None]
  - HYPOCALCIURIA [None]
  - NAUSEA [None]
  - RENAL DISORDER [None]
